FAERS Safety Report 8003096-3 (Version None)
Quarter: 2011Q4

REPORT INFORMATION
  Report Type: 
  Country: None (occurrence: None)
  Receive Date: 20111219
  Receipt Date: 20111201
  Transmission Date: 20120403
  Serious: Yes (Hospitalization, Disabling)
  Sender: FDA-Public Use
  Company Number: 2011AP002935

PATIENT
  Age: 14 Year
  Sex: Male

DRUGS (2)
  1. RISPERIDONE [Suspect]
     Indication: AGGRESSION
     Dosage: 1.1 MG; PO; QD
     Route: 048
     Dates: start: 20110321
  2. RISPERIDONE [Suspect]
     Indication: ANXIETY
     Dosage: 1.1 MG; PO; QD
     Route: 048
     Dates: start: 20110321

REACTIONS (1)
  - GROWTH RETARDATION [None]
